FAERS Safety Report 9122680 (Version 2)
Quarter: 2013Q1

REPORT INFORMATION
  Report Type: Spontaneous
  Country: IT (occurrence: IT)
  Receive Date: 20130115
  Receipt Date: 20130308
  Transmission Date: 20140127
  Serious: Yes (Hospitalization)
  Sender: FDA-Public Use
  Company Number: IT-JNJFOC-20130104960

PATIENT
  Age: 81 Year
  Sex: Female

DRUGS (3)
  1. PALEXIA [Suspect]
     Indication: FRACTURE PAIN
     Route: 048
     Dates: start: 20121121, end: 20121122
  2. LYRICA [Suspect]
     Indication: FRACTURE PAIN
     Route: 048
     Dates: start: 20121121, end: 20121122
  3. CARDIOASPIRIN [Concomitant]
     Indication: PRODUCT USED FOR UNKNOWN INDICATION
     Route: 048

REACTIONS (3)
  - Abdominal pain [Recovering/Resolving]
  - Vertigo [Recovering/Resolving]
  - Nausea [Recovering/Resolving]
